FAERS Safety Report 7749442-7 (Version None)
Quarter: 2011Q3

REPORT INFORMATION
  Report Type: 
  Country: None (occurrence: None)
  Receive Date: 20110907
  Receipt Date: 20110829
  Transmission Date: 20111222
  Serious: Yes (Hospitalization)
  Sender: FDA-Public Use
  Company Number: B0744345A

PATIENT
  Age: 88 Year
  Sex: Female

DRUGS (1)
  1. DIGOXIN [Suspect]
     Indication: CARDIAC FAILURE

REACTIONS (9)
  - RENAL FAILURE ACUTE [None]
  - LOSS OF CONSCIOUSNESS [None]
  - HYPERKALAEMIA [None]
  - HYPOTENSION [None]
  - BLOOD MAGNESIUM INCREASED [None]
  - ENCEPHALOPATHY [None]
  - DIALYSIS [None]
  - SINUS BRADYCARDIA [None]
  - TOXICITY TO VARIOUS AGENTS [None]
